FAERS Safety Report 10156422 (Version 1)
Quarter: 2014Q2

REPORT INFORMATION
  Report Type: Spontaneous
  Country: US (occurrence: US)
  Receive Date: 20140507
  Receipt Date: 20140507
  Transmission Date: 20141212
  Serious: Yes (Other)
  Sender: FDA-Public Use
  Company Number: US-SHIRE-US201401663

PATIENT
  Sex: Male
  Weight: 77.98 kg

DRUGS (2)
  1. ADDERALL XR [Suspect]
     Indication: ATTENTION DEFICIT/HYPERACTIVITY DISORDER
     Dosage: UNK UNK, 2X/DAY:BID
     Route: 048
     Dates: start: 2011, end: 201308
  2. AMPHETAMINE [Concomitant]
     Indication: PRODUCT USED FOR UNKNOWN INDICATION
     Dosage: 10 MG, UNKNOWN
     Route: 065

REACTIONS (6)
  - Tardive dyskinesia [Recovering/Resolving]
  - Cough [Unknown]
  - Pain in extremity [Unknown]
  - Paraesthesia [Unknown]
  - Speech disorder [Not Recovered/Not Resolved]
  - Drug prescribing error [Recovered/Resolved]
